FAERS Safety Report 15248058 (Version 1)
Quarter: 2018Q3

REPORT INFORMATION
  Report Type: Spontaneous
  Country: CA (occurrence: CA)
  Receive Date: 20180714
  Receipt Date: 20180714
  Transmission Date: 20181010
  Serious: Yes (Death, Hospitalization)
  Sender: FDA-Public Use
  Company Number: None

PATIENT
  Age: 59 Year
  Sex: Male
  Weight: 50.4 kg

DRUGS (5)
  1. LOSEC [Concomitant]
     Active Substance: OMEPRAZOLE
  2. HYDROMORPHONE [Concomitant]
     Active Substance: HYDROMORPHONE
  3. TYLENOL [Concomitant]
     Active Substance: ACETAMINOPHEN
  4. MULTIVITE [Concomitant]
     Active Substance: VITAMINS
  5. NEXAVAR [Suspect]
     Active Substance: SORAFENIB
     Dates: end: 20160227

REACTIONS (9)
  - Oedema [None]
  - Abdominal pain upper [None]
  - Weight decreased [None]
  - Decreased appetite [None]
  - Angiopathy [None]
  - Condition aggravated [None]
  - Tumour thrombosis [None]
  - Ascites [None]
  - Infection [None]

NARRATIVE: CASE EVENT DATE: 20160228
